FAERS Safety Report 5274487-9 (Version None)
Quarter: 2007Q1

REPORT INFORMATION
  Report Type: 
  Country: None (occurrence: None)
  Receive Date: 20070323
  Receipt Date: 20070312
  Transmission Date: 20070707
  Serious: Yes (Other)
  Sender: FDA-Public Use
  Company Number: US-PFIZER INC-2007019731

PATIENT
  Age: 25 Year
  Sex: Male

DRUGS (6)
  1. LIPITOR [Suspect]
  2. COZAAR [Concomitant]
  3. ACETYLSALICYLIC ACID SRT [Concomitant]
  4. MULTI-VITAMINS [Concomitant]
  5. HUMALOG [Concomitant]
  6. INSULIN LENTE [Concomitant]

REACTIONS (7)
  - AGGRESSION [None]
  - ALANINE AMINOTRANSFERASE INCREASED [None]
  - ASPARTATE AMINOTRANSFERASE INCREASED [None]
  - BLOOD GLUCOSE INCREASED [None]
  - ELECTROENCEPHALOGRAM ABNORMAL [None]
  - LETHARGY [None]
  - PSYCHOTIC DISORDER [None]
